FAERS Safety Report 21843080 (Version 1)
Quarter: 2023Q1

REPORT INFORMATION
  Report Type: Spontaneous
  Country: US (occurrence: None)
  Receive Date: 20230109
  Receipt Date: 20230109
  Transmission Date: 20230418
  Serious: Yes (Hospitalization, Disabling, Other)
  Sender: FDA-Public Use
  Company Number: None

PATIENT
  Age: 18 Year
  Sex: Male

DRUGS (3)
  1. ENDARI [Suspect]
     Active Substance: GLUTAMINE
     Indication: Sickle cell disease
     Dosage: OTHER QUANTITY : 2 PACKETS;?FREQUENCY : TWICE A DAY;?OTHER ROUTE : MIXED IN A DRINK/WATER + TAKEN BY
     Route: 048
     Dates: start: 20220809, end: 20220909
  2. NAPROXEN [Concomitant]
     Active Substance: NAPROXEN
  3. HYDROXYUREA [Concomitant]
     Active Substance: HYDROXYUREA

REACTIONS (4)
  - Ill-defined disorder [None]
  - Near death experience [None]
  - Musculoskeletal disorder [None]
  - Product complaint [None]

NARRATIVE: CASE EVENT DATE: 20220914
